FAERS Safety Report 8554126-1 (Version None)
Quarter: 2012Q3

REPORT INFORMATION
  Report Type: 
  Country: None (occurrence: None)
  Receive Date: 20120731
  Receipt Date: 20120726
  Transmission Date: 20120928
  Serious: Yes (Other)
  Sender: FDA-Public Use
  Company Number: PHEH2012US014663

PATIENT
  Sex: Male

DRUGS (4)
  1. DIOVAN HCT [Suspect]
     Dosage: 1 DF, QD
  2. VITAMIN D [Concomitant]
     Dosage: UNK UKN, UNK
  3. METFORMIN HYDROCHLORIDE [Concomitant]
     Dosage: 2 DF (500 MG), DAILY
  4. METFORMIN HYDROCHLORIDE [Concomitant]
     Dosage: 1 DF (500 MG), DAILY

REACTIONS (2)
  - OSTEOPOROSIS [None]
  - TYPE 2 DIABETES MELLITUS [None]
